FAERS Safety Report 14193812 (Version 1)
Quarter: 2017Q4

REPORT INFORMATION
  Report Type: Spontaneous
  Country: US (occurrence: US)
  Receive Date: 20171116
  Receipt Date: 20171116
  Transmission Date: 20180321
  Serious: No
  Sender: FDA-Public Use
  Company Number: US-009507513-1711USA004183

PATIENT
  Age: 40 Year
  Sex: Female
  Weight: 74.38 kg

DRUGS (1)
  1. NEXPLANON [Suspect]
     Active Substance: ETONOGESTREL
     Dosage: 1 DF, UNK
     Dates: start: 20140429, end: 20171106

REACTIONS (6)
  - Incorrect drug administration duration [Unknown]
  - Implant site bruising [Unknown]
  - Migration of implanted drug [Unknown]
  - Menometrorrhagia [Unknown]
  - Implant site pain [Unknown]
  - Difficulty removing drug implant [Unknown]

NARRATIVE: CASE EVENT DATE: 20140429
